FAERS Safety Report 4288672-6 (Version None)
Quarter: 2004Q1

REPORT INFORMATION
  Report Type: 
  Country: None (occurrence: None)
  Receive Date: 20040209
  Receipt Date: 20040120
  Transmission Date: 20041129
  Serious: Yes (Other)
  Sender: FDA-Public Use
  Company Number: WAES 0401USA01537

PATIENT
  Age: 83 Year
  Sex: Male

DRUGS (2)
  1. PEPCID [Suspect]
     Route: 042
     Dates: start: 20030630, end: 20030702
  2. PEPCID [Suspect]
     Route: 048
     Dates: start: 20030703, end: 20030708

REACTIONS (4)
  - ALANINE AMINOTRANSFERASE INCREASED [None]
  - ASPARTATE AMINOTRANSFERASE INCREASED [None]
  - ENCEPHALOPATHY [None]
  - PNEUMONIA ASPIRATION [None]
